FAERS Safety Report 4881383-5 (Version None)
Quarter: 2006Q1

REPORT INFORMATION
  Report Type: 
  Country: None (occurrence: None)
  Receive Date: 20060116
  Receipt Date: 20060106
  Transmission Date: 20060701
  Serious: Yes (Other)
  Sender: FDA-Public Use
  Company Number: PHBS2006BR00688

PATIENT
  Age: 68 Year
  Sex: Female

DRUGS (4)
  1. TEGRETOL [Suspect]
     Indication: EPILEPSY
     Dosage: UNK, UNK
     Route: 048
     Dates: end: 20040101
  2. EUTHYROX [Concomitant]
     Dosage: 150 MCG/DAY
     Route: 048
  3. EUTHYROX [Concomitant]
     Dosage: 125 MCG/DAY
     Route: 048
  4. URBANYL [Concomitant]
     Dosage: 15 MG/DAY
     Route: 048

REACTIONS (3)
  - HEPATIC FUNCTION ABNORMAL [None]
  - HEPATOCELLULAR DAMAGE [None]
  - THYROIDECTOMY [None]
